FAERS Safety Report 4880928-9 (Version None)
Quarter: 2005Q4

REPORT INFORMATION
  Report Type: 
  Country: None (occurrence: None)
  Receive Date: 20051223
  Receipt Date: 20051026
  Transmission Date: 20060501
  Serious: No
  Sender: FDA-Public Use
  Company Number: 05P-163-0315370-00

PATIENT
  Age: 62 Year
  Sex: Male
  Weight: 94.1 kg

DRUGS (4)
  1. HUMIRA [Suspect]
     Indication: RHEUMATOID ARTHRITIS
     Dosage: 40 MG, 1 IN 2 WK, SUBCUTANEOUS
     Route: 058
     Dates: start: 20050914
  2. LEFLUNOMIDE [Concomitant]
  3. OMEPRAZOLE [Concomitant]
  4. LUNESTA [Concomitant]

REACTIONS (2)
  - DRUG EFFECT DECREASED [None]
  - STOMACH DISCOMFORT [None]
